FAERS Safety Report 16500627 (Version 6)
Quarter: 2020Q1

REPORT INFORMATION
  Report Type: Spontaneous
  Country: US (occurrence: US)
  Receive Date: 20190701
  Receipt Date: 20200102
  Transmission Date: 20200409
  Serious: Yes (Other)
  Sender: FDA-Public Use
  Company Number: US-PFIZER INC-2019276750

PATIENT
  Age: 69 Year
  Sex: Male
  Weight: 113 kg

DRUGS (3)
  1. LYRICA [Suspect]
     Active Substance: PREGABALIN
     Indication: DIABETIC NEUROPATHY
     Dosage: 75 MG, 3X/DAY
     Dates: start: 201906
  2. LYRICA [Suspect]
     Active Substance: PREGABALIN
     Indication: NEUROPATHY PERIPHERAL
     Dosage: 150 MG, DAILY (TWO 75MG CAPSULES A DAY)
     Route: 048
     Dates: start: 201709
  3. LYRICA [Suspect]
     Active Substance: PREGABALIN
     Dosage: 20 MG, 3X/DAY
     Dates: start: 20190101

REACTIONS (4)
  - Seizure [Not Recovered/Not Resolved]
  - Intentional product use issue [Unknown]
  - Weight increased [Unknown]
  - Neuropathy peripheral [Not Recovered/Not Resolved]

NARRATIVE: CASE EVENT DATE: 201709
